FAERS Safety Report 14588920 (Version 1)
Quarter: 2018Q1

REPORT INFORMATION
  Report Type: Spontaneous
  Country: US (occurrence: US)
  Receive Date: 20180301
  Receipt Date: 20180301
  Transmission Date: 20180509
  Serious: No
  Sender: FDA-Public Use
  Company Number: US-BAUSCH-BL-2017-032619

PATIENT
  Age: 65 Year
  Sex: Female
  Weight: 70.82 kg

DRUGS (5)
  1. POTASSIUM [Concomitant]
     Active Substance: POTASSIUM
     Indication: PRODUCT USED FOR UNKNOWN INDICATION
     Route: 048
  2. EDECRIN [Suspect]
     Active Substance: ETHACRYNIC ACID
     Indication: PLEURAL EFFUSION
  3. LISINOPRIL. [Concomitant]
     Active Substance: LISINOPRIL
     Indication: PRODUCT USED FOR UNKNOWN INDICATION
     Route: 048
  4. EDECRIN [Suspect]
     Active Substance: ETHACRYNIC ACID
     Indication: PERICARDIAL EFFUSION
     Dosage: 5 TABLETS IN THE MORNING AND 5?TABLETS IN THE AFTERNOON
     Route: 048
     Dates: start: 201711, end: 201711
  5. TORSEMIDE. [Concomitant]
     Active Substance: TORSEMIDE
     Indication: DIURETIC THERAPY
     Route: 048

REACTIONS (1)
  - Rash [Recovering/Resolving]

NARRATIVE: CASE EVENT DATE: 201711
